FAERS Safety Report 8390036-0 (Version None)
Quarter: 2012Q2

REPORT INFORMATION
  Report Type: 
  Country: None (occurrence: None)
  Receive Date: 20120529
  Receipt Date: 20120523
  Transmission Date: 20120825
  Serious: Yes (Hospitalization)
  Sender: FDA-Public Use
  Company Number: US-BAYER-2012-021011

PATIENT
  Sex: Male

DRUGS (6)
  1. NEXAVAR [Suspect]
     Dosage: 200 MG, BID
     Dates: start: 20120201, end: 20120101
  2. NEXAVAR [Suspect]
  3. NEXAVAR [Suspect]
     Dosage: 200 MG, QD
     Dates: start: 20120401
  4. NEXAVAR [Suspect]
     Dosage: 400 MG, BID
     Route: 048
     Dates: start: 20120101, end: 20120201
  5. NEXAVAR [Suspect]
     Indication: RENAL CELL CARCINOMA
     Dosage: 200 MG, BID
     Route: 048
     Dates: start: 20111112, end: 20120101
  6. NEXAVAR [Suspect]
     Dosage: 200 MG, BID
     Route: 048

REACTIONS (18)
  - SKIN TIGHTNESS [None]
  - ASTHENIA [None]
  - RASH PRURITIC [None]
  - ALOPECIA [None]
  - PAIN OF SKIN [None]
  - HEART RATE INCREASED [None]
  - PALLOR [None]
  - RASH ERYTHEMATOUS [None]
  - DERMATITIS INFECTED [None]
  - DRY SKIN [None]
  - SKIN FISSURES [None]
  - FATIGUE [None]
  - SKIN EXFOLIATION [None]
  - PAIN [None]
  - CHILLS [None]
  - BLOOD POTASSIUM DECREASED [None]
  - ADVERSE REACTION [None]
  - PYREXIA [None]
